FAERS Safety Report 17915283 (Version 1)
Quarter: 2020Q2

REPORT INFORMATION
  Report Type: Spontaneous
  Country: AU (occurrence: AU)
  Receive Date: 20200619
  Receipt Date: 20200619
  Transmission Date: 20200714
  Serious: Yes (Life-Threatening, Hospitalization, Other)
  Sender: FDA-Public Use
  Company Number: AU-BRISTOL-MYERS SQUIBB COMPANY-BMS-2020-047155

PATIENT
  Age: 38 Year
  Sex: Male

DRUGS (2)
  1. NIVOLUMAB [Suspect]
     Active Substance: NIVOLUMAB
     Indication: ADRENOCORTICAL CARCINOMA
     Dosage: UNK
     Route: 065
  2. IPILIMUMAB [Suspect]
     Active Substance: IPILIMUMAB
     Indication: ADRENOCORTICAL CARCINOMA
     Dosage: UNK
     Route: 065

REACTIONS (5)
  - Orchitis [Unknown]
  - Intentional product use issue [Unknown]
  - Addison^s disease [Unknown]
  - Drug-induced liver injury [Unknown]
  - Thyroiditis [Unknown]
